FAERS Safety Report 7123574-9 (Version None)
Quarter: 2010Q4

REPORT INFORMATION
  Report Type: 
  Country: None (occurrence: None)
  Receive Date: 20101125
  Receipt Date: 20101119
  Transmission Date: 20110411
  Serious: Yes (Death, Hospitalization)
  Sender: FDA-Public Use
  Company Number: US-SANOFI-AVENTIS-2010SA070752

PATIENT
  Age: 68 Year
  Sex: Male

DRUGS (2)
  1. JEVTANA KIT [Suspect]
     Route: 041
     Dates: start: 20100921, end: 20100921
  2. PREDNISONE [Suspect]
     Route: 065
     Dates: start: 20100921

REACTIONS (7)
  - ACUTE RESPIRATORY DISTRESS SYNDROME [None]
  - DEATH [None]
  - DISSEMINATED INTRAVASCULAR COAGULATION [None]
  - DYSPNOEA [None]
  - FEBRILE NEUTROPENIA [None]
  - PULMONARY ALVEOLAR HAEMORRHAGE [None]
  - SEPSIS [None]
